FAERS Safety Report 6683773-7 (Version None)
Quarter: 2010Q2

REPORT INFORMATION
  Report Type: 
  Country: None (occurrence: None)
  Receive Date: 20100416
  Receipt Date: 20100407
  Transmission Date: 20101027
  Serious: No
  Sender: FDA-Public Use
  Company Number: US-BIOGENIDEC-2010BI011590

PATIENT
  Age: 50 Year
  Sex: Female

DRUGS (1)
  1. AVONEX [Suspect]
     Indication: MULTIPLE SCLEROSIS
     Route: 030
     Dates: start: 20100401

REACTIONS (7)
  - CHILLS [None]
  - FEELING HOT [None]
  - HEAD DISCOMFORT [None]
  - INFLUENZA LIKE ILLNESS [None]
  - INSOMNIA [None]
  - SINUS CONGESTION [None]
  - THROAT IRRITATION [None]
